FAERS Safety Report 9168672 (Version 1)
Quarter: 2013Q1

REPORT INFORMATION
  Report Type: Spontaneous
  Country: BR (occurrence: None)
  Receive Date: 20130308
  Receipt Date: 20130308
  Transmission Date: 20140127
  Serious: Yes (Other)
  Sender: FDA-Public Use
  Company Number: DSU-2013-01758

PATIENT
  Age: 6 Decade
  Sex: Female
  Weight: 82 kg

DRUGS (6)
  1. OLMESARTAN MEDOXOMIL [Suspect]
     Indication: PRODUCT USED FOR UNKNOWN INDICATION
     Route: 048
  2. LOSARTAN POTASSIUM W/HCTZ(HYDROCHLOROTHIAZIDE, LOSARTAN POTASSIUM)(HYDROCHLOROTHIAZIDE, LOSARTAN POTASSIUM) [Concomitant]
     Indication: PRODUCT USED FOR UNKNOWN INDICATION
     Dates: start: 2012
  3. ASPIRINA (ACETYLSALICYLIC ACID)(ACETYLSALICYLIC ACID) [Concomitant]
  4. ATENOLOL (ATENOLOL)(50 MILLIGRAM)(ATENOLOL) [Concomitant]
  5. HYGROTON (CHLORTALIDONE)(25 MILLIGRAM) (CHLORTALIDON8) [Concomitant]
  6. TYLENOL(PARACETAMOL)(PARACETAMOL) [Concomitant]

REACTIONS (2)
  - Cerebrovascular accident [None]
  - Nephrolithiasis [None]
